FAERS Safety Report 20499926 (Version 1)
Quarter: 2022Q1

REPORT INFORMATION
  Report Type: Spontaneous
  Country: US (occurrence: US)
  Receive Date: 20220222
  Receipt Date: 20220222
  Transmission Date: 20220423
  Serious: No
  Sender: FDA-Public Use
  Company Number: US-UCBSA-2021035582

PATIENT
  Weight: 31.75 kg

DRUGS (1)
  1. KEPPRA [Suspect]
     Active Substance: LEVETIRACETAM
     Indication: Seizure
     Dosage: 500 MICROGRAM, 3X/DAY (TID)

REACTIONS (2)
  - Somnolence [Unknown]
  - Product use issue [Unknown]
